FAERS Safety Report 17184299 (Version 1)
Quarter: 2019Q4

REPORT INFORMATION
  Report Type: Spontaneous
  Country: US (occurrence: US)
  Receive Date: 20191219
  Receipt Date: 20191219
  Transmission Date: 20200122
  Serious: Yes (Hospitalization)
  Sender: FDA-Public Use
  Company Number: None

PATIENT
  Age: 67 Year
  Sex: Female
  Weight: 82.4 kg

DRUGS (6)
  1. KYPROLIS [Suspect]
     Active Substance: CARFILZOMIB
     Indication: PLASMA CELL MYELOMA
     Dosage: ?          OTHER FREQUENCY:D1, 8, 15 EVERY 28;?
     Route: 040
     Dates: start: 20191203, end: 20191211
  2. PREDNISONE. [Concomitant]
     Active Substance: PREDNISONE
     Dates: start: 20191029
  3. SULFAMETHOXAZOLE-TRIMETHOPRIM [Concomitant]
     Active Substance: SULFAMETHOXAZOLE\TRIMETHOPRIM
     Dates: start: 20191204
  4. ROLAPITANT [Concomitant]
     Active Substance: ROLAPITANT
     Dates: start: 20191122
  5. ACYCLOVIR. [Concomitant]
     Active Substance: ACYCLOVIR
     Dates: start: 20191204
  6. APIXABAN [Concomitant]
     Active Substance: APIXABAN
     Dates: start: 20191126, end: 20191211

REACTIONS (3)
  - Acute kidney injury [None]
  - Anaemia [None]
  - Thrombotic microangiopathy [None]

NARRATIVE: CASE EVENT DATE: 20191212
